FAERS Safety Report 9668756 (Version 1)
Quarter: 2013Q4

REPORT INFORMATION
  Report Type: Spontaneous
  Country: US (occurrence: None)
  Receive Date: 20131104
  Receipt Date: 20131104
  Transmission Date: 20140711
  Serious: Yes (Life-Threatening)
  Sender: FDA-Public Use
  Company Number: None

PATIENT
  Age: 30 Year
  Sex: Female
  Weight: 72.58 kg

DRUGS (1)
  1. PROGESTERONE [Suspect]
     Route: 067
     Dates: start: 20131026

REACTIONS (2)
  - Hypersensitivity [None]
  - Reaction to drug excipients [None]
